FAERS Safety Report 10945797 (Version 3)
Quarter: 2015Q2

REPORT INFORMATION
  Report Type: Report from Study
  Country: US (occurrence: US)
  Receive Date: 20150323
  Receipt Date: 20150507
  Transmission Date: 20150821
  Serious: Yes (Death)
  Sender: FDA-Public Use
  Company Number: US-SA-2015SA018405

PATIENT
  Age: 71 Year
  Sex: Male
  Weight: 58 kg

DRUGS (12)
  1. PREDNISONE. [Concomitant]
     Active Substance: PREDNISONE
     Indication: PAIN
     Dates: start: 201409, end: 20150312
  2. MIDODRINE [Concomitant]
     Active Substance: MIDODRINE
     Indication: HYPERTENSION
     Dates: start: 201411, end: 20150312
  3. FLUDROCORTISONE [Concomitant]
     Active Substance: FLUDROCORTISONE
  4. AUBAGIO [Suspect]
     Active Substance: TERIFLUNOMIDE
     Indication: MULTIPLE SCLEROSIS
     Route: 048
     Dates: start: 20150125, end: 20150303
  5. OXYCODONE [Concomitant]
     Active Substance: OXYCODONE
     Indication: PAIN
     Dosage: 7.5/325 MG
     Dates: start: 201406, end: 20150312
  6. AZATHIOPRINE. [Concomitant]
     Active Substance: AZATHIOPRINE
  7. COLESTYRAMINE [Concomitant]
     Active Substance: CHOLESTYRAMINE
     Dosage: FOR 11 DAYS
     Dates: start: 20150303
  8. LANTUS [Concomitant]
     Active Substance: INSULIN GLARGINE
     Indication: BLOOD GLUCOSE INCREASED
     Dates: start: 201411, end: 20150312
  9. FOLIC ACID. [Concomitant]
     Active Substance: FOLIC ACID
  10. NOVOLOG [Concomitant]
     Active Substance: INSULIN ASPART
     Indication: BLOOD GLUCOSE INCREASED
     Dates: start: 201411, end: 20150312
  11. PANTOPRAZOLE [Concomitant]
     Active Substance: PANTOPRAZOLE SODIUM
  12. FERREX [Concomitant]

REACTIONS (12)
  - Dizziness [Unknown]
  - Decreased appetite [Not Recovered/Not Resolved]
  - Nausea [Unknown]
  - Subarachnoid haemorrhage [Fatal]
  - Hypogeusia [Unknown]
  - Malaise [Unknown]
  - Abdominal discomfort [Unknown]
  - Drug ineffective [Unknown]
  - Feeding disorder [Unknown]
  - Headache [Not Recovered/Not Resolved]
  - Mobility decreased [Not Recovered/Not Resolved]
  - Unevaluable event [Unknown]

NARRATIVE: CASE EVENT DATE: 2015
